FAERS Safety Report 7898430-9 (Version None)
Quarter: 2011Q4

REPORT INFORMATION
  Report Type: 
  Country: None (occurrence: None)
  Receive Date: 20111107
  Receipt Date: 20111028
  Transmission Date: 20120403
  Serious: Yes (Other)
  Sender: FDA-Public Use
  Company Number: US-ACTELION-A-US2007-14345

PATIENT

DRUGS (3)
  1. IRON [Concomitant]
  2. TRACLEER [Suspect]
     Indication: PULMONARY ARTERIAL HYPERTENSION
     Dosage: UNK MG, UNK
     Route: 048
     Dates: start: 20041201
  3. COUMADIN [Concomitant]

REACTIONS (6)
  - FATIGUE [None]
  - DYSPNOEA [None]
  - BLOOD IRON DECREASED [None]
  - NEOPLASM MALIGNANT [None]
  - DRUG DOSE OMISSION [None]
  - ANAEMIA [None]
